FAERS Safety Report 12435519 (Version 1)
Quarter: 2016Q2

REPORT INFORMATION
  Report Type: Spontaneous
  Country: US (occurrence: US)
  Receive Date: 20160603
  Receipt Date: 20160603
  Transmission Date: 20160815
  Serious: No
  Sender: FDA-Public Use
  Company Number: US-ROCHE-1654182

PATIENT
  Age: 56 Year
  Sex: Female

DRUGS (1)
  1. TOCILIZUMAB [Suspect]
     Active Substance: TOCILIZUMAB
     Indication: SYSTEMIC SCLEROSIS
     Route: 065

REACTIONS (6)
  - Abdominal distension [Recovering/Resolving]
  - Anal incontinence [Recovering/Resolving]
  - Large intestine polyp [Recovering/Resolving]
  - Gastrooesophageal reflux disease [Recovering/Resolving]
  - Oesophageal ulcer [Recovering/Resolving]
  - Diarrhoea [Recovering/Resolving]
